FAERS Safety Report 6404169-9 (Version None)
Quarter: 2009Q4

REPORT INFORMATION
  Report Type: 
  Country: None (occurrence: None)
  Receive Date: 20091013
  Receipt Date: 20090924
  Transmission Date: 20100525
  Serious: Yes (Hospitalization, Other)
  Sender: FDA-Public Use
  Company Number: DSA_41777_2009

PATIENT

DRUGS (1)
  1. WELLBUTRIN XL [Suspect]
     Indication: DRUG USE FOR UNKNOWN INDICATION
     Dosage: 450 MG, 150 MG AND 300 MG TABLET, ORAL, 300 MG QD, ORAL
     Route: 048
     Dates: start: 20060624, end: 20090101

REACTIONS (2)
  - CONVULSION [None]
  - TONGUE BITING [None]
